FAERS Safety Report 5410114-5 (Version None)
Quarter: 2007Q3

REPORT INFORMATION
  Report Type: 
  Country: None (occurrence: None)
  Receive Date: 20070713
  Receipt Date: 20070403
  Transmission Date: 20080115
  Serious: No
  Sender: FDA-Public Use
  Company Number: 2007SP001198

PATIENT
  Age: 57 Year
  Sex: Female
  Weight: 83.4619 kg

DRUGS (7)
  1. LUNESTA [Suspect]
     Indication: INSOMNIA
     Dosage: 3 MG;ORAL ; 4 MG;ORAL
     Route: 048
     Dates: start: 20050101
  2. LUNESTA [Suspect]
     Indication: INSOMNIA
     Dosage: 3 MG;ORAL ; 4 MG;ORAL
     Route: 048
     Dates: start: 20050101
  3. WELLBUTRIN [Concomitant]
  4. GLUCOPHAGE [Concomitant]
  5. LAMOTRIGINE [Concomitant]
  6. BENICAR [Concomitant]
  7. AMBIEN [Concomitant]

REACTIONS (3)
  - AMNESIA [None]
  - DRUG TOLERANCE [None]
  - DYSGEUSIA [None]
